FAERS Safety Report 8437036-X (Version None)
Quarter: 2012Q2

REPORT INFORMATION
  Report Type: 
  Country: None (occurrence: None)
  Receive Date: 20120614
  Receipt Date: 20120607
  Transmission Date: 20120825
  Serious: Yes (Hospitalization)
  Sender: FDA-Public Use
  Company Number: US-ELI_LILLY_AND_COMPANY-US201206002736

PATIENT
  Age: 77 Year
  Sex: Female

DRUGS (2)
  1. REMODULIN [Concomitant]
     Dosage: UNK
  2. CIALIS [Suspect]

REACTIONS (3)
  - DYSPNOEA [None]
  - INTENTIONAL DRUG MISUSE [None]
  - OEDEMA [None]
